FAERS Safety Report 5991244-6 (Version None)
Quarter: 2008Q4

REPORT INFORMATION
  Report Type: 
  Country: None (occurrence: None)
  Receive Date: 20081202
  Receipt Date: 20080111
  Transmission Date: 20090506
  Serious: Yes (Disabling, Other)
  Sender: FDA-Public Use
  Company Number: WAES 0705USA01336

PATIENT
  Age: 74 Year
  Sex: Female

DRUGS (3)
  1. FOSAMAX [Suspect]
     Indication: BONE DISORDER
     Dosage: 5 MG/DAILY/PO
     Route: 048
     Dates: start: 19960101
  2. FOSAMAX [Suspect]
     Indication: BONE DISORDER
     Dosage: 70 MG/WKY/PO
     Route: 048
     Dates: end: 20051201
  3. SYNTHROID [Concomitant]

REACTIONS (4)
  - CONSTIPATION [None]
  - IRRITABLE BOWEL SYNDROME [None]
  - OSTEOMYELITIS [None]
  - OSTEONECROSIS [None]
